FAERS Safety Report 16024891 (Version 1)
Quarter: 2019Q1

REPORT INFORMATION
  Report Type: Spontaneous
  Country: US (occurrence: US)
  Receive Date: 20190301
  Receipt Date: 20190301
  Transmission Date: 20190418
  Serious: Yes (Other)
  Sender: FDA-Public Use
  Company Number: US-PFIZER INC-2019082080

PATIENT
  Age: 42 Year
  Sex: Male
  Weight: 94.8 kg

DRUGS (4)
  1. BUPIVACAINE HCL [Suspect]
     Active Substance: BUPIVACAINE HYDROCHLORIDE
     Indication: GOUT
     Dosage: 3.5 ML, SINGLE (3.5ML INJECTION ONCE)
     Dates: start: 20190102, end: 20190102
  2. DEPO-MEDROL [Suspect]
     Active Substance: METHYLPREDNISOLONE ACETATE
     Indication: PAIN IN EXTREMITY
     Dosage: 40 MG (1ML)
     Dates: start: 20181115
  3. DEPO-MEDROL [Suspect]
     Active Substance: METHYLPREDNISOLONE ACETATE
     Indication: GOUT
     Dosage: 40 MG (1ML)
     Dates: start: 20190112
  4. BUPIVACAINE HCL [Suspect]
     Active Substance: BUPIVACAINE HYDROCHLORIDE
     Indication: PAIN IN EXTREMITY
     Dosage: 1 ML, SINGLE (1ML INJECTION ONCE)
     Dates: start: 20181115

REACTIONS (1)
  - Infection [Recovering/Resolving]

NARRATIVE: CASE EVENT DATE: 20190109
